FAERS Safety Report 20488230 (Version 12)
Quarter: 2024Q2

REPORT INFORMATION
  Report Type: Report from Study
  Country: DE (occurrence: DE)
  Receive Date: 20220218
  Receipt Date: 20240425
  Transmission Date: 20240716
  Serious: Yes (Other)
  Sender: FDA-Public Use
  Company Number: DE-NOVARTISPH-PHHY2019DE062558

PATIENT
  Sex: Female
  Weight: 99 kg

DRUGS (15)
  1. KISQALI [Suspect]
     Active Substance: RIBOCICLIB
     Indication: Hormone receptor positive HER2 negative breast cancer
     Dosage: 600 MG; SCHEME 21 DAYS INTAKE, 7 DAYS BREAK
     Route: 048
     Dates: start: 20190123, end: 20190506
  2. KISQALI [Suspect]
     Active Substance: RIBOCICLIB
     Indication: Breast cancer
     Dosage: 0 MG; SCHEME 21 DAYS INTAKE, 7 DAYS BREAK
     Route: 048
     Dates: start: 20190507, end: 20190612
  3. KISQALI [Suspect]
     Active Substance: RIBOCICLIB
     Dosage: 400 MG; SCHEME 21 DAYS INTAKE, 7 DAYS BREAK
     Route: 048
     Dates: start: 20190613, end: 20200311
  4. KISQALI [Suspect]
     Active Substance: RIBOCICLIB
     Dosage: UNK
     Route: 065
     Dates: start: 20200205, end: 20200205
  5. KISQALI [Suspect]
     Active Substance: RIBOCICLIB
     Dosage: 0 MG; SCHEME 21 DAYS INTAKE, 7 DAYS BREAK
     Route: 048
     Dates: start: 20200312, end: 20200517
  6. KISQALI [Suspect]
     Active Substance: RIBOCICLIB
     Dosage: 400 MG; SCHEME 21 DAYS INTAKE, 7 DAYS BREAK
     Route: 048
     Dates: start: 20200518, end: 20200604
  7. KISQALI [Suspect]
     Active Substance: RIBOCICLIB
     Dosage: 0 MG; SCHEME 21 DAYS INTAKE, 7 DAYS BREAK
     Route: 048
     Dates: start: 20200605
  8. KISQALI [Suspect]
     Active Substance: RIBOCICLIB
     Dosage: 400 MG, QD
     Route: 048
     Dates: start: 20221022
  9. LETROZOLE [Suspect]
     Active Substance: LETROZOLE
     Indication: Breast cancer
     Dosage: 2.5 MG, QD (DAILY)
     Route: 048
     Dates: start: 20190123, end: 20200604
  10. LETROZOLE [Suspect]
     Active Substance: LETROZOLE
     Indication: HER2 negative breast cancer
  11. EXEMESTANE [Suspect]
     Active Substance: EXEMESTANE
     Indication: HER2 negative breast cancer
     Dosage: 25 MG, QD
     Route: 048
     Dates: start: 20230104
  12. EXEMESTANE [Suspect]
     Active Substance: EXEMESTANE
     Indication: Breast cancer
  13. FULVESTRANT [Suspect]
     Active Substance: FULVESTRANT
     Indication: HER2 negative breast cancer
     Dosage: UNK
     Route: 065
     Dates: start: 20200205, end: 20200205
  14. FULVESTRANT [Suspect]
     Active Substance: FULVESTRANT
     Indication: Breast cancer
     Dosage: 250 MG, Q4W
     Route: 030
     Dates: start: 20221021, end: 20221205
  15. MOMETASONE [Suspect]
     Active Substance: MOMETASONE
     Indication: Product used for unknown indication
     Dosage: UNK
     Route: 065

REACTIONS (15)
  - Gastrooesophageal reflux disease [Recovered/Resolved]
  - Uterine polyp [Recovered/Resolved]
  - Onychoclasis [Recovered/Resolved]
  - Influenza like illness [Recovered/Resolved]
  - Myalgia [Unknown]
  - Nausea [Recovered/Resolved]
  - Arthralgia [Recovered/Resolved]
  - Arthralgia [Recovered/Resolved]
  - Vaginal haemorrhage [Recovered/Resolved]
  - Diplopia [Recovering/Resolving]
  - Arthralgia [Not Recovered/Not Resolved]
  - Myalgia [Recovered/Resolved]
  - Sleep disorder [Recovering/Resolving]
  - Fatigue [Unknown]
  - Drug intolerance [Unknown]

NARRATIVE: CASE EVENT DATE: 20190202
